FAERS Safety Report 25069442 (Version 1)
Quarter: 2025Q1

REPORT INFORMATION
  Report Type: Spontaneous
  Country: US (occurrence: US)
  Receive Date: 20250312
  Receipt Date: 20250312
  Transmission Date: 20250408
  Serious: No
  Sender: COREPHARMA LLC
  Company Number: US-CorePharma LLC-2172737

PATIENT

DRUGS (3)
  1. TORSEMIDE [Suspect]
     Active Substance: TORSEMIDE
     Indication: Ascites
  2. CARVEDILOL [Concomitant]
     Active Substance: CARVEDILOL
  3. LACTULOSE [Concomitant]
     Active Substance: LACTULOSE

REACTIONS (1)
  - Drug ineffective [Unknown]
